FAERS Safety Report 23899536 (Version 2)
Quarter: 2024Q3

REPORT INFORMATION
  Report Type: Spontaneous
  Country: US (occurrence: US)
  Receive Date: 20240526
  Receipt Date: 20240704
  Transmission Date: 20241017
  Serious: No
  Sender: ROCHE
  Company Number: US-ROCHE-3489277

PATIENT
  Age: 20 Year
  Sex: Female

DRUGS (2)
  1. ACTEMRA [Suspect]
     Active Substance: TOCILIZUMAB
     Indication: Rheumatoid arthritis
     Dosage: ACTEMRA PFS 162MG/0.9ML EVERY 3 WEEKS FOR 2 DOSES THEN EVERY 4 WEEKS FOR 2 DOSES
     Route: 058
     Dates: start: 20240109
  2. ACTEMRA [Suspect]
     Active Substance: TOCILIZUMAB
     Dosage: ACTEMRA PFS 162MG/0.9ML EVERY 3 WEEKS FOR 2 DOSES THEN EVERY 4 WEEKS FOR 2 DOSES
     Route: 058

REACTIONS (2)
  - Off label use [Unknown]
  - No adverse event [Unknown]
